FAERS Safety Report 14923038 (Version 1)
Quarter: 2018Q2

REPORT INFORMATION
  Report Type: Spontaneous
  Country: PH (occurrence: PH)
  Receive Date: 20180522
  Receipt Date: 20180522
  Transmission Date: 20180711
  Serious: Yes (Other)
  Sender: FDA-Public Use
  Company Number: PH-BRISTOL-MYERS SQUIBB COMPANY-BMS-2018-044994

PATIENT
  Age: 64 Year
  Sex: Female

DRUGS (4)
  1. GLUCOPHAGE [Suspect]
     Active Substance: METFORMIN HYDROCHLORIDE
     Indication: DIABETES MELLITUS
     Dosage: 1000 MG, QD
     Route: 065
  2. NEUROBION [Suspect]
     Active Substance: CYANOCOBALAMIN\PYRIDOXINE\THIAMINE
     Indication: VITAMIN SUPPLEMENTATION
     Dosage: 5000 MG, QD
     Route: 065
  3. LIPITOR [Suspect]
     Active Substance: ATORVASTATIN CALCIUM
     Indication: BLOOD CHOLESTEROL
     Dosage: 10 MG, QD
     Route: 065
  4. PLETAAL [Suspect]
     Active Substance: CILOSTAZOL
     Indication: THROMBOSIS
     Dosage: 50 MG, BID
     Route: 065
     Dates: start: 20170104, end: 20180101

REACTIONS (6)
  - Injury [Recovered/Resolved]
  - Therapy cessation [Unknown]
  - Limb injury [None]
  - Injury [None]
  - Haemorrhagic diathesis [None]
  - Haemorrhage [Recovered/Resolved]

NARRATIVE: CASE EVENT DATE: 20180101
